FAERS Safety Report 7170744-X (Version None)
Quarter: 2010Q4

REPORT INFORMATION
  Report Type: 
  Country: None (occurrence: None)
  Receive Date: 20101214
  Receipt Date: 20101214
  Transmission Date: 20110411
  Serious: Yes (Other)
  Sender: FDA-Public Use
  Company Number: None

PATIENT
  Age: 68 Year
  Sex: Male
  Weight: 86.1834 kg

DRUGS (3)
  1. GENTAMICIN [Suspect]
     Indication: BLOOD URINE
     Dosage: 120MG ONCE INJECTION IM
     Route: 030
     Dates: start: 20101015, end: 20101015
  2. CIPROFLAXACIN [Suspect]
     Indication: BLOOD URINE
     Dosage: 500MG TWICE A DAY PO
     Route: 048
     Dates: start: 20101015, end: 20101017
  3. UROXATRAL JOLYN [Concomitant]

REACTIONS (24)
  - ABNORMAL BEHAVIOUR [None]
  - BLISTER [None]
  - CONFUSIONAL STATE [None]
  - DEAFNESS [None]
  - DECREASED APPETITE [None]
  - DEPRESSION [None]
  - DIARRHOEA [None]
  - DISORIENTATION [None]
  - GAIT DISTURBANCE [None]
  - HALLUCINATION, VISUAL [None]
  - HYPOAESTHESIA [None]
  - HYPOAESTHESIA FACIAL [None]
  - LIP SWELLING [None]
  - MICTURITION FREQUENCY DECREASED [None]
  - MUSCLE SPASMS [None]
  - PARAESTHESIA [None]
  - PRURITUS [None]
  - RASH [None]
  - SKIN IRRITATION [None]
  - SPEECH DISORDER [None]
  - SWOLLEN TONGUE [None]
  - THINKING ABNORMAL [None]
  - VISION BLURRED [None]
  - WEIGHT INCREASED [None]
